FAERS Safety Report 7022540-1 (Version None)
Quarter: 2010Q3

REPORT INFORMATION
  Report Type: 
  Country: None (occurrence: None)
  Receive Date: 20100930
  Receipt Date: 20100918
  Transmission Date: 20110219
  Serious: Yes (Hospitalization, Other)
  Sender: FDA-Public Use
  Company Number: CO-PFIZER INC-2010119660

PATIENT
  Age: 79 Year
  Sex: Male

DRUGS (6)
  1. SUTENT [Suspect]
     Indication: HEPATIC NEOPLASM MALIGNANT
     Dosage: 50 MG, 1X/DAY
     Route: 048
     Dates: start: 20100801, end: 20100918
  2. TRAMADOL [Concomitant]
     Indication: HEPATIC PAIN
     Dosage: UNK
     Route: 048
  3. ACETAMINOPHEN [Concomitant]
     Indication: HEPATIC PAIN
     Dosage: UNK
     Route: 048
     Dates: end: 20100901
  4. LORATADINE [Concomitant]
     Indication: DIZZINESS
     Dosage: 10 MG, 1X/DAY
     Route: 048
     Dates: start: 20100801
  5. METOCLOPRAMIDE [Concomitant]
     Indication: DIZZINESS
     Dosage: 10 MG, 1X/DAY
     Route: 048
     Dates: start: 20100801
  6. NOVALGINA [Concomitant]
     Indication: GLOSSODYNIA
     Dosage: 500 MG, AS NEEDED
     Route: 048

REACTIONS (12)
  - CONSTIPATION [None]
  - DEHYDRATION [None]
  - DISORIENTATION [None]
  - DIZZINESS [None]
  - FLUID RETENTION [None]
  - GLOSSODYNIA [None]
  - HYPOGLYCAEMIA [None]
  - LIP BLISTER [None]
  - LIP PAIN [None]
  - LIP SWELLING [None]
  - OEDEMA PERIPHERAL [None]
  - SWOLLEN TONGUE [None]
